FAERS Safety Report 11723131 (Version 1)
Quarter: 2015Q4

REPORT INFORMATION
  Report Type: Spontaneous
  Country: US (occurrence: None)
  Receive Date: 20151110
  Receipt Date: 20151110
  Transmission Date: 20160304
  Serious: Yes (Other)
  Sender: FDA-Public Use
  Company Number: None

PATIENT
  Age: 28 Year
  Sex: Female
  Weight: 84.37 kg

DRUGS (6)
  1. FLUCONAZOLE 200 MG GENERIC [Suspect]
     Active Substance: FLUCONAZOLE
     Indication: TINEA INFECTION
     Dosage: 1 PILL  ONCE DAILY TAKEN BY MOUTH
     Route: 048
  2. VITAMIN D [Concomitant]
     Active Substance: CHOLECALCIFEROL
  3. FLUCONAZOLE 200 MG GENERIC [Suspect]
     Active Substance: FLUCONAZOLE
     Indication: RASH
     Dosage: 1 PILL  ONCE DAILY TAKEN BY MOUTH
     Route: 048
  4. ESCITALOPRAM [Concomitant]
     Active Substance: ESCITALOPRAM OXALATE
  5. KELNOR 1/35 [Concomitant]
     Active Substance: ETHINYL ESTRADIOL\ETHYNODIOL DIACETATE
  6. LEVOTHYROXINE. [Concomitant]
     Active Substance: LEVOTHYROXINE

REACTIONS (6)
  - Urticaria [None]
  - Dizziness [None]
  - Pyrexia [None]
  - Headache [None]
  - Rash [None]
  - Pruritus [None]

NARRATIVE: CASE EVENT DATE: 20151106
